FAERS Safety Report 8487553-1 (Version None)
Quarter: 2012Q2

REPORT INFORMATION
  Report Type: 
  Country: None (occurrence: None)
  Receive Date: 20120613
  Receipt Date: 20120529
  Transmission Date: 20120825
  Serious: Yes (Hospitalization, Disabling)
  Sender: FDA-Public Use
  Company Number: 0227424

PATIENT
  Age: 40 Year
  Sex: Female

DRUGS (12)
  1. TACHOSIL [Suspect]
     Indication: VASCULAR OPERATION
     Dates: start: 20120402, end: 20120404
  2. TACHOSIL [Suspect]
     Indication: BRAIN NEOPLASM
     Dates: start: 20120402, end: 20120404
  3. KIVEXA (ALL OTHER THERAPEUTIC PRODUCTS) [Concomitant]
  4. RANITIDINE HCL [Concomitant]
  5. CYPROTERON (CYPROTERONE) [Concomitant]
  6. UTROGEST (PROGESTERONE) [Concomitant]
  7. ESTRADIOL [Concomitant]
  8. GYNOKADIN (ESTRADIOL) [Concomitant]
  9. ESTROGEN (ESTROGEN NOS) [Concomitant]
  10. NORVIR [Concomitant]
  11. INVIRASE (SAQUINAVIR ESILATE) [Concomitant]
  12. MIRTAZAPINE [Concomitant]

REACTIONS (4)
  - OFF LABEL USE [None]
  - THROMBOSIS [None]
  - SURGICAL PROCEDURE REPEATED [None]
  - VISUAL ACUITY REDUCED [None]
